FAERS Safety Report 9753057 (Version 1)
Quarter: 2013Q4

REPORT INFORMATION
  Report Type: Spontaneous
  Country: US (occurrence: US)
  Receive Date: 20131213
  Receipt Date: 20131213
  Transmission Date: 20140711
  Serious: No
  Sender: FDA-Public Use
  Company Number: US-GILEAD-2010-0026302

PATIENT
  Age: 65 Year
  Sex: Male
  Weight: 111.4 kg

DRUGS (15)
  1. LETAIRIS [Suspect]
     Indication: PULMONARY ARTERIAL HYPERTENSION
     Route: 048
     Dates: start: 20081012
  2. REVATIO [Concomitant]
     Indication: PULMONARY ARTERIAL HYPERTENSION
  3. SPIRONOLACTONE [Concomitant]
  4. FUROSEMIDE [Concomitant]
  5. SOTALOL/HCL [Concomitant]
  6. NEXAVAR [Concomitant]
  7. KLOR-CON [Concomitant]
  8. ZOCOR [Concomitant]
  9. CEFTIN [Concomitant]
  10. ZITHROMAX [Concomitant]
  11. XIFAXAN [Concomitant]
  12. LANTUS [Concomitant]
  13. NOVOLOG [Concomitant]
  14. ZANTAC [Concomitant]
  15. LACTULOSE [Concomitant]

REACTIONS (3)
  - Diarrhoea [Recovered/Resolved]
  - Vomiting [Recovering/Resolving]
  - Abdominal pain [Recovering/Resolving]
